FAERS Safety Report 11010765 (Version 1)
Quarter: 2015Q2

REPORT INFORMATION
  Report Type: Spontaneous
  Country: US (occurrence: US)
  Receive Date: 20150410
  Receipt Date: 20150410
  Transmission Date: 20150821
  Serious: No
  Sender: FDA-Public Use
  Company Number: US-PFIZER INC-2015120634

PATIENT
  Age: 83 Year
  Sex: Male
  Weight: 83 kg

DRUGS (1)
  1. CORTISONE [Suspect]
     Active Substance: CORTISONE\HYDROCORTISONE
     Indication: ARTHRALGIA
     Dosage: UNK UNK, EVERY 3 MONTHS
     Dates: start: 201409, end: 20150330

REACTIONS (1)
  - Joint swelling [Not Recovered/Not Resolved]
